FAERS Safety Report 9369522 (Version 1)
Quarter: 2013Q2

REPORT INFORMATION
  Report Type: Report from Study
  Country: DK (occurrence: DE)
  Receive Date: 20130626
  Receipt Date: 20130626
  Transmission Date: 20140414
  Serious: Yes (Hospitalization)
  Sender: FDA-Public Use
  Company Number: DE-FRI-1000046084

PATIENT
  Sex: Male

DRUGS (9)
  1. ESCITALOPRAM [Suspect]
     Dosage: 10 MG
     Route: 048
     Dates: end: 20050913
  2. ESCITALOPRAM [Suspect]
     Dosage: 20 MG
     Route: 048
  3. CLOZAPINE [Suspect]
     Dosage: 25 MG
     Route: 048
     Dates: start: 20050830, end: 20050830
  4. CLOZAPINE [Suspect]
     Dosage: 62.5 MG
     Route: 048
     Dates: start: 20050831, end: 20050831
  5. CLOZAPINE [Suspect]
     Dosage: TEMPORARILY DOSE REDUCTION; THEREAFTER SLOW DOSAGE INCREASE TO 150 MG/DAY
  6. ZELDOX [Suspect]
     Dosage: 160 MG
     Route: 048
     Dates: end: 20050906
  7. ENAHEXAL [Suspect]
     Dosage: 5 MG
     Route: 048
  8. LAMOTRIGIN [Concomitant]
     Dosage: 100 MG
     Route: 048
     Dates: end: 20050923
  9. ASS [Concomitant]
     Dosage: 300 MG
     Route: 048

REACTIONS (4)
  - Orthostatic hypotension [Recovered/Resolved]
  - Dizziness [Recovered/Resolved]
  - Nausea [Recovered/Resolved]
  - C-reactive protein increased [Unknown]
